FAERS Safety Report 17353898 (Version 1)
Quarter: 2020Q1

REPORT INFORMATION
  Report Type: Spontaneous
  Country: US (occurrence: US)
  Receive Date: 20200130
  Receipt Date: 20200130
  Transmission Date: 20200409
  Serious: Yes (Death)
  Sender: FDA-Public Use
  Company Number: None

PATIENT
  Age: 84 Year
  Sex: Female

DRUGS (9)
  1. NYSTATIN. [Concomitant]
     Active Substance: NYSTATIN
  2. FLUTIC/SALME INH [Concomitant]
  3. AMLODIPINE [Concomitant]
     Active Substance: AMLODIPINE BESYLATE
  4. ALBUTEROL. [Concomitant]
     Active Substance: ALBUTEROL
  5. FOLIC ACID. [Concomitant]
     Active Substance: FOLIC ACID
  6. BUDESONIDE. [Concomitant]
     Active Substance: BUDESONIDE
  7. HUMIRA [Suspect]
     Active Substance: ADALIMUMAB
     Indication: RHEUMATOID ARTHRITIS
     Dosage: ?          OTHER FREQUENCY:EVERY TWO WEEKS;?
     Route: 058
     Dates: start: 20170629, end: 20200129
  8. ASPIRIN. [Concomitant]
     Active Substance: ASPIRIN
  9. PREDNISONE. [Concomitant]
     Active Substance: PREDNISONE

REACTIONS (1)
  - Death [None]

NARRATIVE: CASE EVENT DATE: 20200129
